FAERS Safety Report 14658864 (Version 1)
Quarter: 2018Q1

REPORT INFORMATION
  Report Type: Spontaneous
  Country: DE (occurrence: DE)
  Receive Date: 20180320
  Receipt Date: 20180320
  Transmission Date: 20180509
  Serious: Yes (Congenital Anomaly, Other)
  Sender: FDA-Public Use
  Company Number: DE-BIOGEN-2018BI00543684

PATIENT
  Age: 0 Day
  Sex: Male
  Weight: 3.03 kg

DRUGS (1)
  1. ZINBRYTA [Suspect]
     Active Substance: DACLIZUMAB
     Indication: MATERNAL EXPOSURE TIMING UNSPECIFIED
     Route: 064
     Dates: start: 20161114, end: 20170401

REACTIONS (5)
  - Hyperventilation [Recovered/Resolved]
  - Deafness unilateral [Not Recovered/Not Resolved]
  - Foetal heart rate abnormal [Recovered/Resolved]
  - Ear malformation [Not Recovered/Not Resolved]
  - Foetal exposure during pregnancy [Recovered/Resolved]

NARRATIVE: CASE EVENT DATE: 20180108
